FAERS Safety Report 5061080-6 (Version None)
Quarter: 2006Q3

REPORT INFORMATION
  Report Type: 
  Country: None (occurrence: None)
  Receive Date: 20060720
  Receipt Date: 20060705
  Transmission Date: 20061208
  Serious: Yes (Other)
  Sender: FDA-Public Use
  Company Number: US-2006-017982

PATIENT
  Age: 40 Year
  Sex: Male

DRUGS (1)
  1. BETASERON [Suspect]
     Indication: MULTIPLE SCLEROSIS
     Dosage: 8 MIU, EVERY 2D, SUBCUTANEOUS
     Route: 058
     Dates: start: 20040706, end: 20050915

REACTIONS (7)
  - BLOOD CHOLESTEROL INCREASED [None]
  - FATIGUE [None]
  - HEPATOCELLULAR DAMAGE [None]
  - MULTIPLE SCLEROSIS [None]
  - PYREXIA [None]
  - ROAD TRAFFIC ACCIDENT [None]
  - WEIGHT INCREASED [None]
